FAERS Safety Report 7576927-9 (Version None)
Quarter: 2011Q2

REPORT INFORMATION
  Report Type: 
  Country: None (occurrence: None)
  Receive Date: 20110628
  Receipt Date: 20110624
  Transmission Date: 20111010
  Serious: No
  Sender: FDA-Public Use
  Company Number: US-PFIZER INC-2011141319

PATIENT
  Sex: Female

DRUGS (2)
  1. ADVIL CONGESTION RELIEF [Suspect]
     Dosage: UNK
     Route: 065
  2. ADDERALL 10 [Suspect]
     Dosage: UNK
     Route: 065

REACTIONS (2)
  - FEELING JITTERY [None]
  - NERVOUSNESS [None]
